FAERS Safety Report 6145115-5 (Version None)
Quarter: 2009Q2

REPORT INFORMATION
  Report Type: 
  Country: None (occurrence: None)
  Receive Date: 20090402
  Receipt Date: 20090402
  Transmission Date: 20091009
  Serious: Yes (Other)
  Sender: FDA-Public Use
  Company Number: None

PATIENT
  Age: 43 Year
  Sex: Female
  Weight: 105.6881 kg

DRUGS (2)
  1. LEVONORGESTREL [Suspect]
     Indication: CONTRACEPTION
     Dosage: DON'T KNOW DAILY INTRA-UTERINE
     Route: 015
     Dates: start: 20080616
  2. LEVONORGESTREL [Suspect]
     Indication: MENSTRUAL DISORDER
     Dosage: DON'T KNOW DAILY INTRA-UTERINE
     Route: 015
     Dates: start: 20080616

REACTIONS (10)
  - BACTERIAL INFECTION [None]
  - CONDITION AGGRAVATED [None]
  - DYSPNOEA [None]
  - HYPOAESTHESIA [None]
  - MALAISE [None]
  - MENORRHAGIA [None]
  - MIGRAINE [None]
  - PAIN [None]
  - PRESYNCOPE [None]
  - VAGINAL ODOUR [None]
